FAERS Safety Report 4512876-8 (Version None)
Quarter: 2004Q4

REPORT INFORMATION
  Report Type: 
  Country: None (occurrence: None)
  Receive Date: 20041119
  Receipt Date: 20041119
  Transmission Date: 20050328
  Serious: Yes (Other)
  Sender: FDA-Public Use
  Company Number: None

PATIENT
  Sex: Female
  Weight: 72.1219 kg

DRUGS (1)
  1. D-AMPHETAMINE 10 MG [Suspect]
     Indication: NARCOLEPSY
     Dosage: 10 MG TID PO
     Route: 048
     Dates: start: 20040601, end: 20041101

REACTIONS (2)
  - FATIGUE [None]
  - PHARMACEUTICAL PRODUCT COMPLAINT [None]
